FAERS Safety Report 5319362-6 (Version None)
Quarter: 2007Q2

REPORT INFORMATION
  Report Type: 
  Country: None (occurrence: None)
  Receive Date: 20070508
  Receipt Date: 20070502
  Transmission Date: 20071010
  Serious: Yes (Hospitalization, Other)
  Sender: FDA-Public Use
  Company Number: US-ELI_LILLY_AND_COMPANY-US200705000524

PATIENT
  Age: 68 Year
  Sex: Male

DRUGS (2)
  1. HUMALOG [Suspect]
     Dosage: UNK, UNKNOWN
  2. LANTUS [Concomitant]
     Dosage: UNK, UNKNOWN

REACTIONS (4)
  - BLOOD PRESSURE ABNORMAL [None]
  - CARDIAC DISORDER [None]
  - CERVICAL CORD COMPRESSION [None]
  - RENAL ARTERY STENT PLACEMENT [None]
